FAERS Safety Report 20076384 (Version 1)
Quarter: 2021Q4

REPORT INFORMATION
  Report Type: Spontaneous
  Country: US (occurrence: None)
  Receive Date: 20211115
  Receipt Date: 20211115
  Transmission Date: 20220303
  Serious: No
  Sender: FDA-Public Use
  Company Number: None

PATIENT
  Age: 49 Year
  Sex: Female

DRUGS (1)
  1. EVEROLIMUS [Suspect]
     Active Substance: EVEROLIMUS
     Indication: Breast cancer
     Dosage: FREQUENCY : DAILY;?
     Route: 048
     Dates: start: 20211019

REACTIONS (6)
  - Swelling face [None]
  - Lip swelling [None]
  - Paraesthesia [None]
  - Pruritus [None]
  - Acne [None]
  - Skin disorder [None]

NARRATIVE: CASE EVENT DATE: 20211019
